FAERS Safety Report 24348575 (Version 2)
Quarter: 2024Q4

REPORT INFORMATION
  Report Type: Spontaneous
  Country: TR (occurrence: TR)
  Receive Date: 20240923
  Receipt Date: 20241001
  Transmission Date: 20250114
  Serious: Yes (Disabling, Other)
  Sender: ACCORD
  Company Number: TR-Accord-444884

PATIENT
  Age: 35 Year
  Sex: Female

DRUGS (1)
  1. DOCETAXEL [Suspect]
     Active Substance: DOCETAXEL
     Indication: Breast cancer
     Dosage: REDUCED TO 60 MG/M2

REACTIONS (4)
  - Neuropathy peripheral [Recovering/Resolving]
  - Monoplegia [Recovering/Resolving]
  - Peripheral motor neuropathy [Recovering/Resolving]
  - Peripheral sensory neuropathy [Recovering/Resolving]
